FAERS Safety Report 7967506 (Version 4)
Quarter: 2022Q4

REPORT INFORMATION
  Report Type: Spontaneous
  Country: US (occurrence: None)
  Receive Date: 20110531
  Receipt Date: 20221019
  Transmission Date: 20230113
  Serious: Yes (Hospitalization, Other)
  Sender: FDA-Public Use
  Company Number: US-ROCHE-778585

PATIENT
  Age: 62 Year
  Sex: Female

DRUGS (4)
  1. BONIVA [Suspect]
     Active Substance: IBANDRONATE SODIUM
     Indication: Osteoporosis
     Route: 065
     Dates: start: 2007, end: 2010
  2. BONIVA [Suspect]
     Active Substance: IBANDRONATE SODIUM
     Indication: Osteopenia
  3. FOSAMAX [Suspect]
     Active Substance: ALENDRONATE SODIUM
     Indication: Osteoporosis
     Route: 065
     Dates: start: 2000, end: 2007
  4. FOSAMAX [Suspect]
     Active Substance: ALENDRONATE SODIUM
     Indication: Osteopenia

REACTIONS (23)
  - Femur fracture [Unknown]
  - Low turnover osteopathy [Unknown]
  - Anxiety [Unknown]
  - Emotional distress [Unknown]
  - Urinary tract infection [Unknown]
  - Gout [Unknown]
  - Pleuritic pain [Unknown]
  - Constipation [Unknown]
  - Blood potassium increased [Unknown]
  - Vitamin D deficiency [Unknown]
  - Dyspepsia [Unknown]
  - Asthenia [Unknown]
  - Weight decreased [Unknown]
  - Acute sinusitis [Unknown]
  - Otitis media [Unknown]
  - Cystitis [Unknown]
  - Deafness neurosensory [Unknown]
  - Fungal infection [Unknown]
  - Blood loss anaemia [Unknown]
  - Leukocytosis [Unknown]
  - Nausea [Unknown]
  - Decubitus ulcer [Unknown]
  - Balance disorder [Unknown]

NARRATIVE: CASE EVENT DATE: 20100214
